FAERS Safety Report 5075306-6 (Version None)
Quarter: 2006Q3

REPORT INFORMATION
  Report Type: 
  Country: None (occurrence: None)
  Receive Date: 20060804
  Receipt Date: 20060726
  Transmission Date: 20061208
  Serious: Yes (Other)
  Sender: FDA-Public Use
  Company Number: 2006088092

PATIENT
  Age: 37 Year
  Sex: Male

DRUGS (4)
  1. LYRICA [Suspect]
     Indication: ANXIETY
     Dosage: 150 MG (75 MG, 2 IN 1 D), ORAL
     Route: 048
     Dates: start: 20060612, end: 20060614
  2. ESCITALOPRAM (ESCITALOPRAM) [Concomitant]
  3. SINOGAN (LEVOMEPROMAZINE) [Concomitant]
  4. CLONAZEPAM [Concomitant]

REACTIONS (4)
  - CATAPLEXY [None]
  - DYSARTHRIA [None]
  - HYPOTONIA [None]
  - MUSCLE DISORDER [None]
